FAERS Safety Report 20452081 (Version 1)
Quarter: 2022Q1

REPORT INFORMATION
  Report Type: Report from Study
  Country: MX (occurrence: MX)
  Receive Date: 20220209
  Receipt Date: 20220209
  Transmission Date: 20220423
  Serious: Yes (Other)
  Sender: FDA-Public Use
  Company Number: MX-ABBOTT-2022A-1345501

PATIENT
  Age: 86 Year
  Sex: Female
  Weight: 68 kg

DRUGS (12)
  1. CREON [Suspect]
     Active Substance: PANCRELIPASE AMYLASE\PANCRELIPASE LIPASE\PANCRELIPASE PROTEASE
     Indication: Pancreatitis
     Dosage: DAILY DOSE 450 MILLIGRAM, 1 - 1 - 1, DURING MEALS (TO HALF)
     Route: 048
     Dates: start: 20211013
  2. OMEPRAZOLE [Concomitant]
     Active Substance: OMEPRAZOLE
     Indication: Gastric disorder
     Dosage: DAILY DOSE 80 MILLIGRAM, 1 - 0 - 1
  3. DIMOFLAX [Concomitant]
     Indication: Gastric disorder
     Dosage: 1 - 1 - 1, BEFORE MEALS
  4. CARBOTURAL [Concomitant]
     Indication: Gastric disorder
     Dosage: DAILY DOSE 750 MILLIGRAM, 1 - 1 - 1, AFTER MEALS
  5. AUTRIN [Concomitant]
     Indication: Haemorrhage
     Dosage: DAILY DOSE 200 MILLIGRAM, 1 - 0 - 1
  6. SERTRALINE [Concomitant]
     Active Substance: SERTRALINE HYDROCHLORIDE
     Indication: Product used for unknown indication
     Dosage: DAILY DOSE 25 MILLIGRAM, 0 - 0.5 - 0, WITH THE MEAL
  7. MEMANTINE [Concomitant]
     Active Substance: MEMANTINE
     Indication: Memory impairment
     Dosage: DAILY DOSE 10 MILLIGRAM
  8. SALMETEROL FLUTICASONA IMEDIC [Concomitant]
     Indication: Lung disorder
     Dosage: 1 - 0 - 1
  9. IPRATROPIUM BROMIDE [Concomitant]
     Active Substance: IPRATROPIUM BROMIDE
     Indication: Lung disorder
     Dosage: DAILY DOSE 4 PUFF, 2 - 0 - 2
  10. APIXABAN [Concomitant]
     Active Substance: APIXABAN
     Indication: Anticoagulant therapy
     Dosage: AT MORNING AND AT NIGHT
  11. ATORVASTATIN [Concomitant]
     Active Substance: ATORVASTATIN
     Indication: Blood cholesterol
     Dosage: 2 TABLETS ON MONDAY, WEDNESDAY, FRIDAY AND SUNDAY
  12. OXYGEN [Concomitant]
     Active Substance: OXYGEN
     Indication: Product used for unknown indication
     Dosage: 2 L PER MIN DURING HER SLEEPING

REACTIONS (3)
  - Anaemia [Recovering/Resolving]
  - Pneumonia [Not Recovered/Not Resolved]
  - COVID-19 [Unknown]

NARRATIVE: CASE EVENT DATE: 20211001
